FAERS Safety Report 8767569 (Version 1)
Quarter: 2012Q4

REPORT INFORMATION
  Report Type: Report from Study
  Country: DE (occurrence: DE)
  Receive Date: 20120903
  Receipt Date: 20120903
  Transmission Date: 20130627
  Serious: Yes (Hospitalization)
  Sender: FDA-Public Use
  Company Number: PHHO2012DE012670

PATIENT
  Age: 46 Year
  Sex: Female
  Weight: 65 kg

DRUGS (4)
  1. PREDNISOLONE [Suspect]
     Indication: PANCREAS TRANSPLANT
     Dosage: 10 mg, UNK
     Route: 048
  2. CELLCEPT [Suspect]
     Indication: PANCREAS TRANSPLANT
     Dosage: 1500 mg, UNK
     Route: 048
  3. PROGRAF [Suspect]
     Indication: PANCREAS TRANSPLANT
     Dosage: 5 mg, UNK
     Route: 048
  4. NO TREATMENT RECEIVED [Suspect]
     Dosage: No treatment received

REACTIONS (7)
  - Pyelocaliectasis [Recovered/Resolved]
  - Cystitis bacterial [None]
  - Faecal incontinence [None]
  - Hypertensive crisis [None]
  - Polyneuropathy [None]
  - Hypoaldosteronism [None]
  - Transplant failure [None]
